FAERS Safety Report 17875251 (Version 1)
Quarter: 2020Q2

REPORT INFORMATION
  Report Type: Spontaneous
  Country: US (occurrence: US)
  Receive Date: 20200608
  Receipt Date: 20200608
  Transmission Date: 20200714
  Serious: No
  Sender: FDA-Public Use
  Company Number: None

PATIENT
  Age: 57 Year
  Sex: Male

DRUGS (1)
  1. ENBREL [Suspect]
     Active Substance: ETANERCEPT
     Indication: RHEUMATOID ARTHRITIS
     Dosage: OTHER DOSE:1ML (50MG);?
     Route: 058
     Dates: start: 20200310

REACTIONS (2)
  - Pain [None]
  - Toe amputation [None]

NARRATIVE: CASE EVENT DATE: 20200608
